FAERS Safety Report 23585606 (Version 1)
Quarter: 2024Q1

REPORT INFORMATION
  Report Type: Spontaneous
  Country: SE (occurrence: SE)
  Receive Date: 20240301
  Receipt Date: 20240301
  Transmission Date: 20240409
  Serious: Yes (Disabling)
  Sender: FDA-Public Use
  Company Number: SE-SUN PHARMACEUTICAL INDUSTRIES LTD-2024RR-433671

PATIENT
  Age: 65 Year
  Sex: Female

DRUGS (1)
  1. CIPROFLOXACIN [Suspect]
     Active Substance: CIPROFLOXACIN
     Indication: Urethritis
     Dosage: 2 TABLETS A DAY
     Route: 065
     Dates: start: 20230622, end: 20230627

REACTIONS (4)
  - Gait disturbance [Recovering/Resolving]
  - Joint swelling [Not Recovered/Not Resolved]
  - Neuropathy peripheral [Not Recovered/Not Resolved]
  - Dysstasia [Recovering/Resolving]

NARRATIVE: CASE EVENT DATE: 20230627
